FAERS Safety Report 11152308 (Version 3)
Quarter: 2015Q2

REPORT INFORMATION
  Report Type: Spontaneous
  Country: JP (occurrence: JP)
  Receive Date: 20150601
  Receipt Date: 20150617
  Transmission Date: 20150821
  Serious: Yes (Other)
  Sender: FDA-Public Use
  Company Number: JP-TEVA-566478ISR

PATIENT
  Age: 66 Year
  Sex: Female
  Weight: 33 kg

DRUGS (3)
  1. TRASTUZUMAB [Suspect]
     Active Substance: TRASTUZUMAB
     Indication: GASTRIC CANCER
     Dosage: 8 MG/KG DAILY;
     Route: 065
  2. CISPLATIN. [Suspect]
     Active Substance: CISPLATIN
     Indication: GASTRIC CANCER
     Dosage: 80 MG/M2 DAILY;
     Route: 065
  3. CAPECITABINE. [Suspect]
     Active Substance: CAPECITABINE
     Indication: GASTRIC CANCER
     Dosage: 2400 MILLIGRAM DAILY; 2 WEEKS ON/1 WEEK OFF MEDICATION
     Route: 065

REACTIONS (1)
  - Renal salt-wasting syndrome [Recovered/Resolved]
